FAERS Safety Report 24047780 (Version 1)
Quarter: 2024Q3

REPORT INFORMATION
  Report Type: Other
  Country: DK (occurrence: DK)
  Receive Date: 20240703
  Receipt Date: 20240703
  Transmission Date: 20241016
  Serious: Yes (Hospitalization)
  Sender: GE HEALTHCARE
  Company Number: None

PATIENT
  Age: 67 Year
  Sex: Female

DRUGS (1)
  1. OMNIPAQUE [Suspect]
     Active Substance: IOHEXOL
     Indication: Scan with contrast
     Dosage: 68 ML, TOTAL
     Route: 042
     Dates: start: 20240614, end: 20240614

REACTIONS (3)
  - Dysphonia [Unknown]
  - Dry throat [Unknown]
  - Cough [Unknown]

NARRATIVE: CASE EVENT DATE: 20240614
